FAERS Safety Report 17515902 (Version 7)
Quarter: 2020Q3

REPORT INFORMATION
  Report Type: Report from Study
  Country: JP (occurrence: JP)
  Receive Date: 20200309
  Receipt Date: 20200915
  Transmission Date: 20201102
  Serious: Yes (Hospitalization)
  Sender: FDA-Public Use
  Company Number: JP-ASTELLAS-2020JP001581

PATIENT
  Age: 59 Year
  Sex: Male

DRUGS (15)
  1. NIFEDIPINE CR SANWA [Concomitant]
     Indication: TRANSITIONAL CELL CARCINOMA
     Route: 048
     Dates: start: 2004
  2. ZINC OXIDE. [Concomitant]
     Active Substance: ZINC OXIDE
     Indication: DRUG ERUPTION
     Dosage: UNK UNK, APPLICATION AS NEEDED
     Route: 061
     Dates: start: 20200304
  3. MAGNESIUM OXIDE. [Concomitant]
     Active Substance: MAGNESIUM OXIDE
     Indication: CONSTIPATION
     Route: 048
     Dates: start: 20200309
  4. ZOLPIDEM TARTRATE. [Concomitant]
     Active Substance: ZOLPIDEM TARTRATE
     Indication: INSOMNIA
     Route: 048
     Dates: start: 20200116
  5. HEPARINOID [Concomitant]
     Active Substance: CHONDROITIN SULFATE (BOVINE)
     Indication: DRUG ERUPTION
     Dosage: 0.3 %, APPLICATION AS NEEDED
     Route: 061
     Dates: start: 20200219
  6. PREDONINE [Concomitant]
     Active Substance: PREDNISOLONE
     Dosage: 20 MG/DAY, UNKNOWN FREQ.
     Route: 048
     Dates: start: 20200310
  7. STIBRON [Concomitant]
     Indication: DRUG ERUPTION
     Dosage: UNK UNK, APPLICATION AS NEEDED
     Route: 061
     Dates: start: 20200304
  8. PREDONINE [Concomitant]
     Active Substance: PREDNISOLONE
     Indication: DRUG ERUPTION
     Dosage: 15 MG/DAY, UNKNOWN FREQ.
     Route: 048
     Dates: start: 20200304
  9. PREDONINE [Concomitant]
     Active Substance: PREDNISOLONE
     Dosage: 60 MG/DAY, UNKNOWN FREQ.
     Route: 048
  10. BELSOMRA [Concomitant]
     Active Substance: SUVOREXANT
     Indication: INSOMNIA
     Route: 048
     Dates: start: 20191226
  11. LYRICA [Concomitant]
     Active Substance: PREGABALIN
     Indication: PAIN
     Route: 048
     Dates: start: 20191226
  12. ASG?22CE [Suspect]
     Active Substance: ENFORTUMAB VEDOTIN
     Indication: TRANSITIONAL CELL CARCINOMA
     Dosage: 1.25 MG/KG, DAY 1, DAY8, DAY 15 OF EACH CYCLE OF 28 DAYS
     Route: 042
     Dates: start: 20200115
  13. RINDERON V [Concomitant]
     Active Substance: BETAMETHASONE VALERATE
     Indication: DRUG ERUPTION
     Dosage: 0.12 %, APPLICATION AS NEEDED
     Route: 061
     Dates: start: 20200226
  14. PREDONINE [Concomitant]
     Active Substance: PREDNISOLONE
     Dosage: 40 MG/DAY, UNKNOWN FREQ.
     Route: 048
     Dates: start: 20200306, end: 20200309
  15. TAKECAB [Concomitant]
     Active Substance: VONOPRAZAN FUMARATE
     Indication: PROPHYLAXIS
     Route: 048
     Dates: start: 20200306

REACTIONS (3)
  - Drug eruption [Recovered/Resolved]
  - Acute generalised exanthematous pustulosis [Recovered/Resolved]
  - Infective spondylitis [Recovering/Resolving]

NARRATIVE: CASE EVENT DATE: 20200122
